FAERS Safety Report 9238119 (Version 1)
Quarter: 2013Q2

REPORT INFORMATION
  Report Type: Spontaneous
  Country: US (occurrence: US)
  Receive Date: 20130418
  Receipt Date: 20130418
  Transmission Date: 20140414
  Serious: Yes (Other)
  Sender: FDA-Public Use
  Company Number: PHEH2013US008484

PATIENT
  Sex: Male

DRUGS (2)
  1. DIOVAN [Suspect]
     Dosage: 320 MG, QD
  2. ASPIRIN [Concomitant]
     Dosage: 81 MG

REACTIONS (2)
  - Myocardial infarction [Unknown]
  - Renal disorder [Unknown]
